FAERS Safety Report 8518743-7 (Version None)
Quarter: 2012Q3

REPORT INFORMATION
  Report Type: 
  Country: None (occurrence: None)
  Receive Date: 20120718
  Receipt Date: 20120711
  Transmission Date: 20120928
  Serious: Yes (Hospitalization, Other)
  Sender: FDA-Public Use
  Company Number: PHEH2012US013710

PATIENT
  Sex: Female

DRUGS (3)
  1. COZAAR [Concomitant]
     Dosage: UNK
  2. ASPIRIN [Concomitant]
     Dosage: UNK
  3. DIOVAN HCT [Suspect]
     Dosage: 160/12.5 MG, UNK

REACTIONS (1)
  - MYOCARDIAL INFARCTION [None]
